FAERS Safety Report 15907107 (Version 1)
Quarter: 2019Q1

REPORT INFORMATION
  Report Type: Spontaneous
  Country: US (occurrence: US)
  Receive Date: 20190204
  Receipt Date: 20190204
  Transmission Date: 20190417
  Serious: No
  Sender: FDA-Public Use
  Company Number: US-PFIZER INC-2019051236

PATIENT
  Sex: Female

DRUGS (1)
  1. LYRICA [Suspect]
     Active Substance: PREGABALIN
     Indication: SEBORRHOEIC DERMATITIS
     Dosage: UNK

REACTIONS (2)
  - Oedema peripheral [Unknown]
  - Product use in unapproved indication [Unknown]
